FAERS Safety Report 24272633 (Version 1)
Quarter: 2024Q3

REPORT INFORMATION
  Report Type: Report from Study
  Country: US (occurrence: US)
  Receive Date: 20240902
  Receipt Date: 20240902
  Transmission Date: 20241017
  Serious: Yes (Hospitalization, Disabling, Other)
  Sender: TAKEDA
  Company Number: US-TAKEDA-2023TUS054563

PATIENT
  Age: 33 Year
  Sex: Male

DRUGS (2)
  1. PONATINIB [Suspect]
     Active Substance: PONATINIB
     Indication: Acute lymphocytic leukaemia
     Dosage: 15 MILLIGRAM, QD
     Route: 048
  2. PONATINIB [Suspect]
     Active Substance: PONATINIB
     Indication: Acute lymphocytic leukaemia recurrent

REACTIONS (6)
  - Hospitalisation [Unknown]
  - Paraplegia [Not Recovered/Not Resolved]
  - Impaired healing [Not Recovered/Not Resolved]
  - Limb injury [Not Recovered/Not Resolved]
  - Cardiovascular disorder [Recovering/Resolving]
  - Arterial occlusive disease [Recovering/Resolving]

NARRATIVE: CASE EVENT DATE: 20211101
